FAERS Safety Report 4692057-8 (Version None)
Quarter: 2005Q2

REPORT INFORMATION
  Report Type: 
  Country: None (occurrence: None)
  Receive Date: 20050614
  Receipt Date: 20050531
  Transmission Date: 20051028
  Serious: Yes (Hospitalization)
  Sender: FDA-Public Use
  Company Number: 2005BI010643

PATIENT
  Age: 55 Year
  Sex: Male
  Weight: 117.9352 kg

DRUGS (3)
  1. AVONEX [Suspect]
     Indication: MULTIPLE SCLEROSIS
     Dosage: 30 UG; QW; IM
     Route: 030
     Dates: start: 19970101, end: 20030801
  2. AVONEX [Suspect]
     Indication: MULTIPLE SCLEROSIS
     Dosage: 30 UG; QW; IM
     Route: 030
     Dates: start: 20030801
  3. LIPITOR [Concomitant]

REACTIONS (12)
  - ARTHRITIS [None]
  - DEPRESSION [None]
  - FAECALOMA [None]
  - FATIGUE [None]
  - FUNGAL INFECTION [None]
  - INSOMNIA [None]
  - MUSCLE SPASMS [None]
  - MUSCLE SPASTICITY [None]
  - PAIN [None]
  - STRESS [None]
  - THROMBOSIS [None]
  - URINARY RETENTION [None]
